FAERS Safety Report 11102694 (Version 2)
Quarter: 2015Q2

REPORT INFORMATION
  Report Type: Spontaneous
  Country: IT (occurrence: IT)
  Receive Date: 20150511
  Receipt Date: 20150603
  Transmission Date: 20150821
  Serious: Yes (Hospitalization)
  Sender: FDA-Public Use
  Company Number: IT-009507513-1504ITA024425

PATIENT
  Age: 58 Year
  Sex: Male

DRUGS (6)
  1. REBETOL [Suspect]
     Active Substance: RIBAVIRIN
     Dosage: (2 CAPSULES PLUS 2 CAPSULES) 4 DF, DAILY
     Route: 048
     Dates: start: 2015, end: 2015
  2. SOVALDI [Suspect]
     Active Substance: SOFOSBUVIR
     Dosage: ONE 400MG TABLET, DAILY
     Route: 048
     Dates: start: 2015, end: 2015
  3. REBETOL [Suspect]
     Active Substance: RIBAVIRIN
     Indication: CHRONIC HEPATITIS C
     Dosage: 1 CAPSULE OF 200 MG, DAILY
     Route: 048
     Dates: start: 20150317, end: 20150323
  4. REBETOL [Suspect]
     Active Substance: RIBAVIRIN
     Dosage: ONE CAPSULE (1 DF) EVERY 12 HRS
     Route: 048
     Dates: start: 2015, end: 2015
  5. SOVALDI [Suspect]
     Active Substance: SOFOSBUVIR
     Indication: CHRONIC HEPATITIS C
     Dosage: 2 TABLETS OF 400 MG, DAILY
     Route: 048
     Dates: start: 20150317, end: 20150323
  6. TRIATEC (RAMIPRIL) [Concomitant]
     Active Substance: RAMIPRIL
     Route: 048

REACTIONS (4)
  - Urosepsis [Unknown]
  - Anaemia [Unknown]
  - Myocardial ischaemia [Unknown]
  - Angina pectoris [Unknown]

NARRATIVE: CASE EVENT DATE: 2015
